FAERS Safety Report 4471020-6 (Version None)
Quarter: 2004Q4

REPORT INFORMATION
  Report Type: 
  Country: None (occurrence: None)
  Receive Date: 20041011
  Receipt Date: 20040915
  Transmission Date: 20050328
  Serious: Yes (Other)
  Sender: FDA-Public Use
  Company Number: CA-GLAXOSMITHKLINE-A0525978A

PATIENT
  Age: 38 Year
  Sex: Female
  Weight: 80 kg

DRUGS (4)
  1. GLIMEPIRIDE + ROSIGLITAZONE [Suspect]
     Route: 048
     Dates: start: 20040312, end: 20040904
  2. WELLBUTRIN SR [Suspect]
     Indication: DEPRESSION
     Dosage: 150MG PER DAY
     Route: 048
     Dates: start: 20020101, end: 20040904
  3. EFFEXOR XR [Suspect]
     Indication: DEPRESSION
     Dosage: 225MG PER DAY
     Route: 048
     Dates: start: 20020101, end: 20040904
  4. VITAMIN C [Concomitant]
     Indication: NUTRITIONAL SUPPORT

REACTIONS (2)
  - ABORTION SPONTANEOUS [None]
  - VAGINAL HAEMORRHAGE [None]
